FAERS Safety Report 13639945 (Version 1)
Quarter: 2017Q2

REPORT INFORMATION
  Report Type: Spontaneous
  Country: US (occurrence: US)
  Receive Date: 20170609
  Receipt Date: 20170609
  Transmission Date: 20170830
  Serious: No
  Sender: FDA-Public Use
  Company Number: US-ROCHE-1411267

PATIENT
  Sex: Male

DRUGS (2)
  1. KLONOPIN [Suspect]
     Active Substance: CLONAZEPAM
     Indication: HEADACHE
     Route: 065
     Dates: start: 20120903
  2. XANAX [Concomitant]
     Active Substance: ALPRAZOLAM
     Indication: HEADACHE
     Route: 065
     Dates: start: 2012

REACTIONS (1)
  - Drug withdrawal syndrome [Unknown]
